FAERS Safety Report 11177986 (Version 1)
Quarter: 2015Q2

REPORT INFORMATION
  Report Type: Spontaneous
  Country: US (occurrence: None)
  Receive Date: 20150515
  Receipt Date: 20150515
  Transmission Date: 20150821
  Serious: Yes (Other)
  Sender: FDA-Public Use
  Company Number: 2015001772

PATIENT
  Age: 40 Year
  Sex: Female

DRUGS (3)
  1. CIMZIA [Suspect]
     Active Substance: CERTOLIZUMAB PEGOL
     Indication: RHEUMATOID ARTHRITIS
     Dates: start: 20140221
  2. UPPER RESPIRATORY TRACT INFECTION [Concomitant]
  3. LYMPHADENOPATHY [Concomitant]

REACTIONS (2)
  - Lymphadenopathy [None]
  - Upper respiratory tract infection [None]

NARRATIVE: CASE EVENT DATE: 20141228
